FAERS Safety Report 5222202-7 (Version None)
Quarter: 2007Q1

REPORT INFORMATION
  Report Type: 
  Country: None (occurrence: None)
  Receive Date: 20070129
  Receipt Date: 20060921
  Transmission Date: 20070707
  Serious: No
  Sender: FDA-Public Use
  Company Number: US-GLAXOSMITHKLINE-A0620975A

PATIENT
  Sex: Male

DRUGS (3)
  1. BUPROPION HYDROCHLORIDE [Suspect]
     Indication: DEPRESSION
     Route: 048
  2. PAROXETINE HCL [Suspect]
     Indication: DEPRESSION
     Route: 048
  3. PAROXETINE HCL [Concomitant]

REACTIONS (1)
  - HYPERHIDROSIS [None]
